FAERS Safety Report 13228469 (Version 1)
Quarter: 2017Q1

REPORT INFORMATION
  Report Type: Spontaneous
  Country: US (occurrence: US)
  Receive Date: 20170213
  Receipt Date: 20170213
  Transmission Date: 20170428
  Serious: Yes (Other)
  Sender: FDA-Public Use
  Company Number: US-ROCHE-1230094

PATIENT
  Sex: Male

DRUGS (1)
  1. PULMOZYME [Suspect]
     Active Substance: DORNASE ALFA
     Indication: CYSTIC FIBROSIS
     Route: 065
     Dates: end: 20130523

REACTIONS (6)
  - Urticaria [Unknown]
  - Rash [Recovered/Resolved]
  - Vomiting [Unknown]
  - Dry eye [Recovered/Resolved]
  - Laryngitis [Recovered/Resolved]
  - Ocular hyperaemia [Recovered/Resolved]
